FAERS Safety Report 21034700 (Version 7)
Quarter: 2023Q1

REPORT INFORMATION
  Report Type: Report from Study
  Country: US (occurrence: US)
  Receive Date: 20220701
  Receipt Date: 20230217
  Transmission Date: 20230418
  Serious: Yes (Hospitalization)
  Sender: FDA-Public Use
  Company Number: US-BIOVITRUM-2022US08376

PATIENT
  Age: 62 Year
  Sex: Female

DRUGS (4)
  1. KINERET [Suspect]
     Active Substance: ANAKINRA
     Indication: Crystal arthropathy
     Dates: start: 20220413
  2. KINERET [Suspect]
     Active Substance: ANAKINRA
     Dates: start: 202204
  3. KINERET [Suspect]
     Active Substance: ANAKINRA
     Dates: start: 20220413
  4. KINERET [Suspect]
     Active Substance: ANAKINRA
     Dates: start: 20220616

REACTIONS (10)
  - Unevaluable event [Unknown]
  - Sinusitis [Unknown]
  - Condition aggravated [Unknown]
  - Crystal arthropathy [Unknown]
  - Diarrhoea [Unknown]
  - Vomiting [Unknown]
  - Nausea [Unknown]
  - Hypersensitivity [Unknown]
  - Rash [Unknown]
  - Off label use [Unknown]

NARRATIVE: CASE EVENT DATE: 20220413
